FAERS Safety Report 19893745 (Version 4)
Quarter: 2021Q4

REPORT INFORMATION
  Report Type: Spontaneous
  Country: US (occurrence: US)
  Receive Date: 20210928
  Receipt Date: 20211027
  Transmission Date: 20220304
  Serious: Yes (Other)
  Sender: FDA-Public Use
  Company Number: US-PFIZER INC-202101176897

PATIENT
  Age: 5 Year
  Sex: Male

DRUGS (2)
  1. GENOTROPIN [Suspect]
     Active Substance: SOMATROPIN
     Indication: Short stature
     Dosage: 0.4 MG, DAILY
     Dates: start: 202101
  2. GENOTROPIN [Suspect]
     Active Substance: SOMATROPIN
     Dosage: 0.5 MG, 1X/DAY
     Route: 058

REACTIONS (3)
  - Poor quality product administered [Unknown]
  - Product packaging quantity issue [Unknown]
  - Product dose omission issue [Unknown]

NARRATIVE: CASE EVENT DATE: 20210101
